FAERS Safety Report 14423991 (Version 1)
Quarter: 2018Q1

REPORT INFORMATION
  Report Type: Spontaneous
  Country: NL (occurrence: NL)
  Receive Date: 20180123
  Receipt Date: 20180123
  Transmission Date: 20180509
  Serious: Yes (Other)
  Sender: FDA-Public Use
  Company Number: NL-TEVA-2018-NL-851236

PATIENT
  Age: 52 Year
  Sex: Female
  Weight: 76 kg

DRUGS (7)
  1. METFORMINE 500 [Concomitant]
     Active Substance: METFORMIN HYDROCHLORIDE
     Dosage: 2000 MILLIGRAM DAILY;
  2. SIMVASTATINE 40 [Concomitant]
     Dosage: 40 MILLIGRAM DAILY;
  3. HYDROCHLOORTHIAZIDE 12,5 [Concomitant]
     Dosage: 12.5 MILLIGRAM DAILY;
  4. DESLORATADINE 5 [Concomitant]
     Dosage: 5 MILLIGRAM DAILY;
  5. TOLTERODINE CAPSULE [Suspect]
     Active Substance: TOLTERODINE
     Indication: URGE INCONTINENCE
     Route: 065
     Dates: start: 20171002, end: 20171019
  6. CODEINE 20 [Concomitant]
     Dosage: 20 MILLIGRAM DAILY;
  7. PARACETAMOL 500 [Concomitant]
     Active Substance: ACETAMINOPHEN
     Dosage: 9000 MILLIGRAM DAILY;

REACTIONS (3)
  - Fluid retention [Recovered/Resolved]
  - Suicidal ideation [Recovered/Resolved]
  - Depressed mood [Recovered/Resolved]

NARRATIVE: CASE EVENT DATE: 20171012
